FAERS Safety Report 6855651-1 (Version None)
Quarter: 2010Q3

REPORT INFORMATION
  Report Type: 
  Country: None (occurrence: None)
  Receive Date: 20100719
  Receipt Date: 20090629
  Transmission Date: 20110219
  Serious: No
  Sender: FDA-Public Use
  Company Number: US-KINGPHARMUSA00001-K200900783

PATIENT
  Sex: Female
  Weight: 62.132 kg

DRUGS (1)
  1. LEVOXYL [Suspect]
     Indication: AUTOIMMUNE THYROIDITIS
     Dosage: 25 MCG, QD
     Route: 048
     Dates: start: 20090601

REACTIONS (1)
  - ALOPECIA [None]
